FAERS Safety Report 7918874-6 (Version None)
Quarter: 2011Q4

REPORT INFORMATION
  Report Type: 
  Country: None (occurrence: None)
  Receive Date: 20111116
  Receipt Date: 20111109
  Transmission Date: 20120403
  Serious: Yes (Other)
  Sender: FDA-Public Use
  Company Number: PHHY2011NL099695

PATIENT
  Sex: Female

DRUGS (2)
  1. METHOTREXATE [Suspect]
     Indication: RHEUMATOID ARTHRITIS
     Dosage: 2.5 MG, UNK
     Route: 048
     Dates: start: 20111008
  2. LITHIUM CARBONATE [Concomitant]
     Dosage: 400 MG, UNK
     Dates: start: 20020401

REACTIONS (3)
  - NAUSEA [None]
  - HEARING IMPAIRED [None]
  - TINNITUS [None]
